FAERS Safety Report 12827521 (Version 3)
Quarter: 2016Q4

REPORT INFORMATION
  Report Type: Report from Study
  Country: None (occurrence: DE)
  Receive Date: 20161007
  Receipt Date: 20161024
  Transmission Date: 20170207
  Serious: Yes (Hospitalization)
  Sender: FDA-Public Use
  Company Number: DE-ABBVIE-16P-062-1747139-00

PATIENT
  Sex: Female

DRUGS (1)
  1. DUODOPA [Suspect]
     Active Substance: CARBIDOPA\LEVODOPA
     Indication: PARKINSON^S DISEASE
     Dosage: MD 4.5ML, CRD 1.5ML/H, ED 0ML
     Route: 050
     Dates: start: 20071030

REACTIONS (2)
  - Pneumonia aspiration [Not Recovered/Not Resolved]
  - Akinesia [Not Recovered/Not Resolved]
